FAERS Safety Report 16340061 (Version 1)
Quarter: 2019Q2

REPORT INFORMATION
  Report Type: Spontaneous
  Country: US (occurrence: US)
  Receive Date: 20190521
  Receipt Date: 20190521
  Transmission Date: 20190711
  Serious: Yes (Hospitalization)
  Sender: FDA-Public Use
  Company Number: US-BEH-2019102424

PATIENT
  Age: 74 Year
  Sex: Female

DRUGS (23)
  1. ASPIRIN. [Concomitant]
     Active Substance: ASPIRIN
     Route: 065
  2. TUSSIGON [Concomitant]
     Active Substance: HOMATROPINE METHYLBROMIDE\HYDROCODONE BITARTRATE
     Route: 065
  3. HIZENTRA [Suspect]
     Active Substance: HUMAN IMMUNOGLOBULIN G
     Indication: IMMUNODEFICIENCY
     Dosage: 40 ML, QW
     Route: 058
     Dates: start: 20140603
  4. HYDROCODONE/HOMATROPINE [Concomitant]
     Active Substance: HOMATROPINE METHYLBROMIDE\HYDROCODONE BITARTRATE
     Route: 065
  5. TRAMADOL. [Concomitant]
     Active Substance: TRAMADOL
     Route: 065
  6. TRIAMTEREEN/HYDROCHLOORTHIAZIDE [Concomitant]
     Active Substance: HYDROCHLOROTHIAZIDE\TRIAMTERENE
     Route: 065
  7. ZANTAC [Concomitant]
     Active Substance: RANITIDINE HYDROCHLORIDE
     Route: 065
  8. CLOTRIMAZOLE. [Concomitant]
     Active Substance: CLOTRIMAZOLE
     Route: 065
  9. TARCEVA [Concomitant]
     Active Substance: ERLOTINIB HYDROCHLORIDE
     Route: 065
  10. AFATINIB [Concomitant]
     Active Substance: AFATINIB
     Route: 065
  11. POTASSIUM CHLORIDE. [Concomitant]
     Active Substance: POTASSIUM CHLORIDE
     Route: 065
  12. SIMVASTATIN. [Concomitant]
     Active Substance: SIMVASTATIN
     Route: 065
  13. AVASTIN                            /00848101/ [Concomitant]
     Active Substance: SIMVASTATIN
     Route: 065
  14. CARBOPLATIN. [Concomitant]
     Active Substance: CARBOPLATIN
     Route: 065
  15. METOPROLOL. [Concomitant]
     Active Substance: METOPROLOL
     Route: 065
  16. MULTIVITAMIN                       /00097801/ [Concomitant]
     Active Substance: VITAMINS
     Route: 065
  17. NITROGLYCERIN. [Concomitant]
     Active Substance: NITROGLYCERIN
     Route: 065
  18. RANITIDINE. [Concomitant]
     Active Substance: RANITIDINE
  19. EVOXAC [Concomitant]
     Active Substance: CEVIMELINE HYDROCHLORIDE
     Route: 065
  20. ISOSORBIDE MONONITE [Concomitant]
     Route: 065
  21. NITROSTAT [Concomitant]
     Active Substance: NITROGLYCERIN
     Route: 065
  22. ONDANSETRON [Concomitant]
     Active Substance: ONDANSETRON
     Route: 065
  23. PREDNISONE. [Concomitant]
     Active Substance: PREDNISONE
     Route: 065

REACTIONS (1)
  - Pneumonia [Not Recovered/Not Resolved]

NARRATIVE: CASE EVENT DATE: 20190512
